FAERS Safety Report 8717222 (Version 5)
Quarter: 2012Q4

REPORT INFORMATION
  Report Type: Report from Study
  Country: US (occurrence: None)
  Receive Date: 20120726
  Receipt Date: 20120911
  Transmission Date: 20130627
  Serious: Yes (Hospitalization)
  Sender: FDA-Public Use
  Company Number: UTC-020988

PATIENT
  Age: 65 Year
  Sex: Male
  Weight: 74.55 kg

DRUGS (17)
  1. TYVASO [Suspect]
     Indication: PULMONARY ARTERIAL HYPERTENSION
     Dosage: 18-54 MCG (4 IN 1 D), INHALATION
     Route: 055
     Dates: start: 20120614
  2. TYVASO [Suspect]
     Indication: PULMONARY ARTERIAL HYPERTENSION
     Dosage: 18-54 MCG (4 IN 1 D), INHALATION
     Route: 055
     Dates: start: 20120614
  3. COUMADIN [Concomitant]
  4. CARVEDILOL (CARVEDILOL) (TABLET) [Concomitant]
  5. REQUIP (ROPINIROLE HYDROCHLORIDE) (TABLET) [Concomitant]
  6. TEMAZEPAM (TEMAZEPAM) (CAPSULE) [Concomitant]
  7. ZOCOR [Concomitant]
  8. ALBUTEROL [Concomitant]
  9. SPIRIVA [Concomitant]
  10. LASIX [Concomitant]
  11. DUCOSATE CALCIUM (DOCUSATE CALCIUM) [Concomitant]
  12. CYCLOBENZAPRINE (CYCLOBENZAPRINE) (TABLET) [Concomitant]
  13. OXYGEN (OXYGEN) [Concomitant]
  14. DUONEB [Concomitant]
  15. DIGOXIN [Concomitant]
  16. DULOXETINE HYDROCHLORIDE [Concomitant]
  17. TESSALON PERLES (BENZONATATE) (CAPSULE) [Concomitant]

REACTIONS (5)
  - Chronic obstructive pulmonary disease [None]
  - Oedema peripheral [None]
  - Disease complication [None]
  - Fatigue [None]
  - Anxiety [None]
